FAERS Safety Report 7287627-7 (Version None)
Quarter: 2011Q1

REPORT INFORMATION
  Report Type: 
  Country: None (occurrence: None)
  Receive Date: 20110208
  Receipt Date: 20110208
  Transmission Date: 20110831
  Serious: Yes (Hospitalization)
  Sender: FDA-Public Use
  Company Number: None

PATIENT
  Age: 53 Year
  Sex: Male
  Weight: 84.1 kg

DRUGS (1)
  1. INTERFERON [Suspect]
     Indication: LUNG NEOPLASM MALIGNANT

REACTIONS (7)
  - NEUTROPENIA [None]
  - PNEUMONIA [None]
  - RED BLOOD CELL COUNT DECREASED [None]
  - HERPES SIMPLEX [None]
  - HAEMOGLOBIN DECREASED [None]
  - HAEMATOCRIT DECREASED [None]
  - THROMBOCYTOPENIA [None]
